FAERS Safety Report 5289337-4 (Version None)
Quarter: 2007Q2

REPORT INFORMATION
  Report Type: 
  Country: None (occurrence: None)
  Receive Date: 20070406
  Receipt Date: 20070326
  Transmission Date: 20071010
  Serious: Yes (Other)
  Sender: FDA-Public Use
  Company Number: US-NOVOPROD-256177

PATIENT
  Age: 59 Year
  Sex: Female
  Weight: 78.458 kg

DRUGS (8)
  1. ACTIVELLA [Suspect]
     Indication: MENOPAUSAL SYMPTOMS
     Dosage: UNK, UNK
  2. PREMARIN [Suspect]
     Indication: MENOPAUSAL SYMPTOMS
     Dosage: .0625 MG.
     Route: 048
     Dates: start: 19950301, end: 20030101
  3. ESTRATEST H.S. [Suspect]
     Indication: MENOPAUSAL SYMPTOMS
     Dosage: UNKNOWN
     Route: 048
     Dates: start: 19980301, end: 20030101
  4. MEDROXYPROGESTERONE ACETATE [Suspect]
     Indication: MENOPAUSAL SYMPTOMS
     Dosage: 2.5 MG, UNK
     Dates: start: 19971201
  5. PROVERA [Concomitant]
     Indication: MENOPAUSE
     Dosage: 2.5 MG, UNK
     Dates: start: 19950901
  6. SYNTHROID [Concomitant]
     Indication: THYROID DISORDER
     Dosage: UNKNOWN
     Route: 048
     Dates: start: 19990101
  7. EFFEXOR XR [Concomitant]
     Indication: HOT FLUSH
     Dosage: UNKNOWN
     Route: 048
     Dates: start: 20030101
  8. COUMADIN [Concomitant]
     Indication: THROMBOSIS
     Dosage: UNKNOWN
     Route: 048
     Dates: start: 20030101

REACTIONS (1)
  - BREAST CANCER [None]
